FAERS Safety Report 7016980-4 (Version None)
Quarter: 2010Q3

REPORT INFORMATION
  Report Type: 
  Country: None (occurrence: None)
  Receive Date: 20100927
  Receipt Date: 20100805
  Transmission Date: 20110219
  Serious: No
  Sender: FDA-Public Use
  Company Number: US-PFIZER INC-001-0981-M0101900

PATIENT
  Sex: Male
  Weight: 83.91 kg

DRUGS (4)
  1. LIPITOR [Suspect]
     Indication: HYPERLIPIDAEMIA
     Dosage: UNK
     Dates: start: 19990101
  2. LIPITOR [Suspect]
     Indication: PROPHYLAXIS
  3. TIMOLOL MALEATE [Concomitant]
     Dosage: UNK
  4. ALEVE (CAPLET) [Concomitant]
     Indication: OSTEOARTHRITIS
     Dosage: THREE TIMES A DAY AS NEEDED
     Route: 048

REACTIONS (4)
  - AMNESIA [None]
  - BLOOD CHOLESTEROL INCREASED [None]
  - HIGH DENSITY LIPOPROTEIN DECREASED [None]
  - LOW DENSITY LIPOPROTEIN INCREASED [None]
